FAERS Safety Report 17082962 (Version 3)
Quarter: 2019Q4

REPORT INFORMATION
  Report Type: Spontaneous
  Country: IT (occurrence: IT)
  Receive Date: 20191127
  Receipt Date: 20191217
  Transmission Date: 20200122
  Serious: Yes (Hospitalization, Other)
  Sender: FDA-Public Use
  Company Number: IT-PFIZER INC-2019511404

PATIENT
  Age: 60 Year
  Sex: Female

DRUGS (15)
  1. TRIMETON [Concomitant]
     Active Substance: CHLORPHENIRAMINE MALEATE
     Indication: PREMEDICATION
     Dosage: 1 DF, UNK
  2. ALLOPURINOL. [Concomitant]
     Active Substance: ALLOPURINOL
     Dosage: 300 MG, AT 9.00
  3. FUROSEMIDE. [Concomitant]
     Active Substance: FUROSEMIDE
     Dosage: 20 MG, AT 9.00
  4. SODIUM CARBONATE [Concomitant]
     Active Substance: SODIUM CARBONATE
     Dosage: 500 ML, AT 9.00
  5. URBASON [METHYLPREDNISOLONE] [Concomitant]
     Active Substance: METHYLPREDNISOLONE
     Indication: PREMEDICATION
     Dosage: 20 MG, UNK
  6. VANCOMYCIN [Concomitant]
     Active Substance: VANCOMYCIN
     Dosage: 1 G, AT 9.00 AND 21.00
     Route: 042
     Dates: start: 20191024
  7. PERFALGAN [Concomitant]
     Active Substance: ACETAMINOPHEN
     Indication: PREMEDICATION
     Dosage: 1 UNK, UNK
  8. MYLOTARG [Suspect]
     Active Substance: GEMTUZUMAB OZOGAMICIN
     Dosage: UNK
     Route: 042
     Dates: start: 20191026, end: 20191026
  9. CARVEDILOL. [Concomitant]
     Active Substance: CARVEDILOL
     Dosage: 6.25 MG, AT 9.00
  10. SODIUM CHLORIDE. [Concomitant]
     Active Substance: SODIUM CHLORIDE
     Dosage: 1000 ML, AT 9.00
  11. MYLOTARG [Suspect]
     Active Substance: GEMTUZUMAB OZOGAMICIN
     Indication: ACUTE MYELOID LEUKAEMIA
     Dosage: 4.7 MG, UNK
     Route: 042
     Dates: start: 20191023
  12. DAUNOBLASTIN [Concomitant]
     Active Substance: DAUNORUBICIN HYDROCHLORIDE
     Dosage: 93 MG, UNK
     Route: 042
     Dates: start: 20191023, end: 20191025
  13. NAVOBAN [Concomitant]
     Active Substance: TROPISETRON HYDROCHLORIDE
     Dosage: 5 MG, AT 9.00 AND AT 21.00
  14. CYTARABINE. [Concomitant]
     Active Substance: CYTARABINE
     Dosage: 310 MG, UNK
     Dates: start: 20191023
  15. MEROPENEM. [Concomitant]
     Active Substance: MEROPENEM
     Dosage: 1 G, AT 8.00, 15.00 AND 22.00
     Route: 042
     Dates: start: 20191024

REACTIONS (6)
  - Acute respiratory distress syndrome [Recovered/Resolved]
  - Neutropenia [Recovered/Resolved]
  - Oedema peripheral [Recovered/Resolved]
  - Haematuria [Unknown]
  - Thrombocytopenia [Recovered/Resolved]
  - Pyrexia [Recovered/Resolved]

NARRATIVE: CASE EVENT DATE: 20191025
